FAERS Safety Report 7921137-6 (Version None)
Quarter: 2011Q4

REPORT INFORMATION
  Report Type: 
  Country: None (occurrence: None)
  Receive Date: 20111117
  Receipt Date: 20111109
  Transmission Date: 20120403
  Serious: Yes (Congenital Anomaly)
  Sender: FDA-Public Use
  Company Number: PHHY2011DK098638

PATIENT
  Sex: Male
  Weight: 2.5 kg

DRUGS (1)
  1. FLUOXETINE [Suspect]
     Indication: DEPRESSION
     Route: 064
     Dates: start: 20081101

REACTIONS (4)
  - LOW BIRTH WEIGHT BABY [None]
  - PSYCHOMOTOR SKILLS IMPAIRED [None]
  - FOETAL EXPOSURE DURING PREGNANCY [None]
  - HYPERMOBILITY SYNDROME [None]
